FAERS Safety Report 7643461-7 (Version None)
Quarter: 2011Q3

REPORT INFORMATION
  Report Type: 
  Country: None (occurrence: None)
  Receive Date: 20110729
  Receipt Date: 20110721
  Transmission Date: 20111222
  Serious: Yes (Other)
  Sender: FDA-Public Use
  Company Number: US-JNJFOC-20110203110

PATIENT
  Sex: Female

DRUGS (5)
  1. NUCYNTA [Suspect]
     Indication: HEADACHE
     Dosage: EVERY 6 HOURS AS NEEDED
     Route: 048
     Dates: start: 20100101, end: 20110201
  2. UNKNOWN MEDICATION [Concomitant]
     Route: 065
  3. FENTANYL [Concomitant]
     Indication: MIGRAINE
     Route: 062
  4. UNKNOWN MEDICATION [Concomitant]
     Indication: MIGRAINE
     Route: 065
  5. NUCYNTA [Suspect]
     Indication: MIGRAINE
     Dosage: EVERY 6 HOURS AS NEEDED
     Route: 048
     Dates: start: 20100101, end: 20110201

REACTIONS (1)
  - DEPRESSION [None]
